FAERS Safety Report 7221702-8 (Version None)
Quarter: 2010Q4

REPORT INFORMATION
  Report Type: 
  Country: None (occurrence: None)
  Receive Date: 20101230
  Receipt Date: 20101216
  Transmission Date: 20110411
  Serious: Yes (Other)
  Sender: FDA-Public Use
  Company Number: AUR-APL-2010-03199

PATIENT
  Sex: Male

DRUGS (6)
  1. LISINOPRIL [Suspect]
     Indication: HYPERTENSION
     Dosage: ORAL
     Route: 048
  2. ACCUPRIL [Suspect]
     Indication: HYPERTENSION
     Dosage: ORAL
     Route: 048
  3. VALSARTAN [Suspect]
     Indication: HYPERTENSION
     Dosage: ORAL
     Route: 048
  4. INSULIN [Concomitant]
  5. PROCARDIA [Concomitant]
  6. LIPITOR [Concomitant]

REACTIONS (1)
  - CARDIAC DISORDER [None]
